FAERS Safety Report 10782720 (Version 1)
Quarter: 2015Q1

REPORT INFORMATION
  Report Type: Spontaneous
  Country: US (occurrence: US)
  Receive Date: 20150210
  Receipt Date: 20150210
  Transmission Date: 20150721
  Serious: No
  Sender: FDA-Public Use
  Company Number: US-GLAXOSMITHKLINE-A1078684A

PATIENT

DRUGS (1)
  1. LAMICTAL XR [Suspect]
     Active Substance: LAMOTRIGINE
     Indication: SEIZURE
     Dosage: 50 MG TABLET AT UNKNOWN DOSING
     Route: 065
     Dates: start: 20140603

REACTIONS (3)
  - Drug dose omission [Unknown]
  - Aura [Recovered/Resolved]
  - Vision blurred [Recovered/Resolved]
